FAERS Safety Report 4474535-X (Version None)
Quarter: 2004Q3

REPORT INFORMATION
  Report Type: 
  Country: None (occurrence: None)
  Receive Date: 20040923
  Receipt Date: 20040805
  Transmission Date: 20050211
  Serious: No
  Sender: FDA-Public Use
  Company Number: USA040771746

PATIENT
  Age: 64 Year
  Sex: Female
  Weight: 60 kg

DRUGS (3)
  1. FORTEO [Suspect]
     Indication: OSTEOPOROSIS
     Dosage: 20 UG DAY
     Dates: start: 20040628
  2. ZOCOR [Concomitant]
  3. ACIPHEX [Concomitant]

REACTIONS (2)
  - INJECTION SITE DERMATITIS [None]
  - INJECTION SITE ERYTHEMA [None]
